FAERS Safety Report 11787769 (Version 1)
Quarter: 2015Q4

REPORT INFORMATION
  Report Type: Spontaneous
  Country: US (occurrence: US)
  Receive Date: 20151130
  Receipt Date: 20151130
  Transmission Date: 20160305
  Serious: Yes (Other)
  Sender: FDA-Public Use
  Company Number: US-AKRIMAX-IDR-2015-0039

PATIENT
  Age: 69 Year
  Sex: Female

DRUGS (8)
  1. CLOBETASOL PROPIONATE. [Concomitant]
     Active Substance: CLOBETASOL PROPIONATE
     Indication: PRODUCT USED FOR UNKNOWN INDICATION
  2. INDERAL LA [Suspect]
     Active Substance: PROPRANOLOL HYDROCHLORIDE
     Indication: ARRHYTHMIA
  3. MAGNESIUM COMPOUND [Concomitant]
     Indication: PRODUCT USED FOR UNKNOWN INDICATION
  4. INDERAL LA [Suspect]
     Active Substance: PROPRANOLOL HYDROCHLORIDE
     Indication: ARRHYTHMIA
     Dosage: ONE 80MG CAPSULE DAILY
     Route: 048
     Dates: start: 1985, end: 20151111
  5. ECONAZOLE NITRATE. [Concomitant]
     Active Substance: ECONAZOLE NITRATE
     Indication: PSORIASIS
     Route: 061
  6. PREMARIN [Concomitant]
     Active Substance: ESTROGENS, CONJUGATED
     Indication: PRODUCT USED FOR UNKNOWN INDICATION
     Dosage: TWICE PER DAY
     Route: 048
  7. VITAMIN B12 [Concomitant]
     Active Substance: CYANOCOBALAMIN
     Indication: PRODUCT USED FOR UNKNOWN INDICATION
     Route: 048
  8. AQUAPHOR [Concomitant]
     Active Substance: PETROLATUM
     Indication: PSORIASIS

REACTIONS (10)
  - Feeling abnormal [Not Recovered/Not Resolved]
  - Arthropod bite [Not Recovered/Not Resolved]
  - Allergy to chemicals [Not Recovered/Not Resolved]
  - Dizziness [Not Recovered/Not Resolved]
  - Rheumatoid arthritis [Not Recovered/Not Resolved]
  - Depressed level of consciousness [Not Recovered/Not Resolved]
  - Lichen sclerosus [Not Recovered/Not Resolved]
  - Fatigue [Not Recovered/Not Resolved]
  - Exposure to toxic agent [Not Recovered/Not Resolved]
  - Yawning [Not Recovered/Not Resolved]

NARRATIVE: CASE EVENT DATE: 2002
